FAERS Safety Report 7037153-5 (Version None)
Quarter: 2010Q4

REPORT INFORMATION
  Report Type: 
  Country: None (occurrence: None)
  Receive Date: 20101011
  Receipt Date: 20101005
  Transmission Date: 20110411
  Serious: Yes (Death, Life-Threatening, Hospitalization, Disabling, Other)
  Sender: FDA-Public Use
  Company Number: US-NOVOPROD-314540

PATIENT
  Sex: Female
  Weight: 68.3 kg

DRUGS (20)
  1. IDEG FLEXPEN [Suspect]
     Indication: TYPE 1 DIABETES MELLITUS
     Dosage: 11 IU, QD
     Route: 058
     Dates: start: 20100401, end: 20100906
  2. NOVORAPID FLEXPEN [Suspect]
     Indication: TYPE 1 DIABETES MELLITUS
     Dosage: APPROX. 15 U, QD
     Route: 058
     Dates: start: 20100401, end: 20100906
  3. LEVOTHYROXINE [Concomitant]
     Indication: HYPOTHYROIDISM
     Dosage: 125 UG, QD
     Route: 048
     Dates: start: 19950101, end: 20100906
  4. LEVOTHYROXINE [Concomitant]
     Dosage: 150 UG, QD
     Route: 048
     Dates: start: 19950101, end: 20100906
  5. LEVOTHYROXINE [Concomitant]
     Dosage: 137 UG, QD
     Route: 048
  6. MIDOL                              /00002701/ [Concomitant]
     Indication: DYSMENORRHOEA
     Dosage: 2 TAB, PRN
     Route: 048
     Dates: start: 20100324, end: 20100331
  7. HYDROCODONE [Concomitant]
     Indication: DYSMENORRHOEA
     Dosage: 15 MG, QD
     Route: 048
     Dates: start: 20100330, end: 20100330
  8. HYDROCODONE [Concomitant]
     Dosage: 15 MG, PRN
     Route: 048
     Dates: start: 20100405, end: 20100407
  9. MICONAZOLE NITRATE [Concomitant]
     Indication: HYPOTHYROIDISM
     Dosage: 1 SUPP, QD
     Dates: start: 20100325, end: 20100331
  10. NOVOCAIN [Concomitant]
     Indication: DYSMENORRHOEA
     Dosage: 1 INJECTION
     Dates: start: 20100330, end: 20100330
  11. AMOXICILLIN [Concomitant]
     Indication: DYSMENORRHOEA
     Dosage: 2000 MG, QD
     Route: 048
     Dates: start: 20100405, end: 20100413
  12. CLARITIN                           /00413701/ [Concomitant]
     Indication: HYPERSENSITIVITY
     Dosage: 10 MG, QD
     Route: 048
     Dates: start: 20100526, end: 20100527
  13. ZITHROMAX [Concomitant]
     Indication: SINUSITIS
     Dosage: 500 MG, QD
     Route: 048
     Dates: start: 20100526, end: 20100526
  14. ZITHROMAX [Concomitant]
     Dosage: 250 MG, QD
     Route: 048
     Dates: start: 20100527, end: 20100530
  15. CODEINE COMPOUND                   /00056501/ [Concomitant]
     Indication: PHARYNGITIS
     Dosage: 12 TSP, QD
     Route: 048
     Dates: start: 20100526, end: 20100530
  16. TYLENOL ALLERGY SINUS              /00446801/ [Concomitant]
     Indication: HYPERSENSITIVITY
     Dosage: 2 TAB, PRN
     Route: 048
     Dates: start: 20100528, end: 20100604
  17. VICKS DAYQUIL SINUS PRESSURE + PAIN RELIEF W/ IBUPROFEN [Concomitant]
     Indication: SINUSITIS
     Dosage: 1 DOSE, PRN
     Route: 048
     Dates: start: 20100524, end: 20100524
  18. CHLORASEPTIC [Concomitant]
     Indication: SINUSITIS
     Dosage: 1 PUFF, PRN
     Dates: start: 20100524, end: 20100530
  19. MACROBID [Concomitant]
     Indication: URINARY TRACT INFECTION
     Dosage: 100 MG, BID
     Dates: start: 20100628, end: 20100705
  20. LANTUS [Concomitant]
     Indication: TYPE 1 DIABETES MELLITUS
     Dosage: 5-10 IU, QD (BEDTIME)
     Route: 058

REACTIONS (1)
  - COMPLETED SUICIDE [None]
